FAERS Safety Report 23152998 (Version 2)
Quarter: 2023Q4

REPORT INFORMATION
  Report Type: Report from Study
  Country: CA (occurrence: CA)
  Receive Date: 20231107
  Receipt Date: 20231229
  Transmission Date: 20240110
  Serious: Yes (Other)
  Sender: FDA-Public Use
  Company Number: CA-KOREA IPSEN Pharma-2021-07231

PATIENT
  Age: 70 Year
  Sex: Male

DRUGS (7)
  1. LANREOTIDE ACETATE [Suspect]
     Active Substance: LANREOTIDE ACETATE
     Indication: Carcinoid syndrome
     Dosage: 120MG
     Route: 058
     Dates: start: 20201123
  2. XARELTO [Concomitant]
     Active Substance: RIVAROXABAN
     Dosage: 1 TAB DAILY
  3. BISOPROLOL [Concomitant]
     Active Substance: BISOPROLOL\BISOPROLOL FUMARATE
     Dosage: 1/4 TAB DAILY
  4. TAMSULOSIN [Concomitant]
     Active Substance: TAMSULOSIN
     Dosage: 1 TAB DAILY
  5. NIFEDIPINE [Concomitant]
     Active Substance: NIFEDIPINE
     Indication: Proctalgia
     Dosage: 0.5 PERCENT FOR PERIANAL REGION
  6. NIFEDIPINE [Concomitant]
     Active Substance: NIFEDIPINE
     Indication: Discomfort
  7. PREVACID [Concomitant]
     Active Substance: LANSOPRAZOLE
     Dosage: PO DIE

REACTIONS (16)
  - Bradycardia [Recovered/Resolved]
  - Injection site pain [Not Recovered/Not Resolved]
  - Injection site pain [Not Recovered/Not Resolved]
  - Fungal skin infection [Not Recovered/Not Resolved]
  - Tachycardia [Recovered/Resolved]
  - Peripheral swelling [Recovered/Resolved]
  - Hypotension [Not Recovered/Not Resolved]
  - Flatulence [Not Recovered/Not Resolved]
  - Rash erythematous [Not Recovered/Not Resolved]
  - Dizziness [Recovered/Resolved]
  - Nausea [Recovered/Resolved]
  - Fatigue [Not Recovered/Not Resolved]
  - Pain in extremity [Recovered/Resolved]
  - Headache [Recovered/Resolved]
  - Abdominal pain [Not Recovered/Not Resolved]
  - Lack of injection site rotation [Unknown]

NARRATIVE: CASE EVENT DATE: 20210315
